FAERS Safety Report 10222230 (Version 1)
Quarter: 2014Q2

REPORT INFORMATION
  Report Type: Spontaneous
  Country: US (occurrence: US)
  Receive Date: 20140606
  Receipt Date: 20140606
  Transmission Date: 20141212
  Serious: Yes (Hospitalization)
  Sender: FDA-Public Use
  Company Number: US-GLAXOSMITHKLINE-A1075498A

PATIENT
  Age: 68 Year
  Sex: Male

DRUGS (2)
  1. COREG CR [Suspect]
     Indication: HYPERTENSION
     Dosage: 20MG PER DAY
     Route: 065
     Dates: start: 2010, end: 201204
  2. MULTIPLE MEDICATIONS [Concomitant]

REACTIONS (2)
  - Prostate cancer [Recovered/Resolved]
  - Prostatectomy [Recovered/Resolved]
